FAERS Safety Report 17136721 (Version 2)
Quarter: 2019Q4

REPORT INFORMATION
  Report Type: Report from Study
  Country: JP (occurrence: JP)
  Receive Date: 20191210
  Receipt Date: 20191220
  Transmission Date: 20200122
  Serious: Yes (Death, Other)
  Sender: FDA-Public Use
  Company Number: JP-JNJFOC-20191210544

PATIENT
  Age: 75 Year
  Sex: Female
  Weight: 41 kg

DRUGS (3)
  1. DEXAMETHASONE. [Concomitant]
     Active Substance: DEXAMETHASONE
     Indication: PLASMA CELL MYELOMA
     Route: 065
     Dates: start: 20171206, end: 20171206
  2. DARZALEX [Suspect]
     Active Substance: DARATUMUMAB
     Indication: PLASMA CELL MYELOMA
     Route: 041
     Dates: start: 20171206, end: 20171206
  3. LENALIDOMIDE [Suspect]
     Active Substance: LENALIDOMIDE
     Indication: PLASMA CELL MYELOMA
     Route: 048
     Dates: start: 20171206, end: 20171209

REACTIONS (8)
  - Disseminated intravascular coagulation [Fatal]
  - Infusion related reaction [Unknown]
  - Red blood cell count decreased [Unknown]
  - Septic shock [Fatal]
  - Rhinorrhoea [Unknown]
  - Platelet count decreased [Unknown]
  - Epistaxis [Unknown]
  - White blood cell count decreased [Fatal]

NARRATIVE: CASE EVENT DATE: 201712
